FAERS Safety Report 21854984 (Version 1)
Quarter: 2023Q1

REPORT INFORMATION
  Report Type: Spontaneous
  Country: US (occurrence: US)
  Receive Date: 20230112
  Receipt Date: 20230112
  Transmission Date: 20230417
  Serious: No
  Sender: FDA-Public Use
  Company Number: US-BIOVITRUM-2022US14998

PATIENT
  Sex: Female

DRUGS (2)
  1. SYNAGIS [Suspect]
     Active Substance: PALIVIZUMAB
     Indication: Premature baby
     Dosage: 50MG/0.5ML?100MG/ML
     Dates: start: 202211
  2. SYNAGIS [Suspect]
     Active Substance: PALIVIZUMAB
     Dosage: 100MG/ML
     Dates: start: 202202

REACTIONS (1)
  - COVID-19 [Unknown]
